FAERS Safety Report 8349098-9 (Version None)
Quarter: 2012Q2

REPORT INFORMATION
  Report Type: 
  Country: None (occurrence: None)
  Receive Date: 20120510
  Receipt Date: 20120430
  Transmission Date: 20120825
  Serious: Yes (Other)
  Sender: FDA-Public Use
  Company Number: US-SANOFI-AVENTIS-2011SA074871

PATIENT
  Age: 61 Year
  Sex: Female
  Weight: 56.7 kg

DRUGS (10)
  1. FISH OIL [Concomitant]
     Dates: start: 20110101, end: 20111101
  2. ASPIRIN [Concomitant]
     Dates: start: 20110101, end: 20111101
  3. MULTI-VITAMINS [Concomitant]
  4. ASPIRIN [Concomitant]
  5. CALCIUM [Concomitant]
  6. PLAVIX [Suspect]
     Route: 048
     Dates: start: 20110401, end: 20111109
  7. LOVENOX [Concomitant]
  8. FISH OIL [Concomitant]
  9. VITAMIN D [Concomitant]
  10. VITAMIN D [Concomitant]

REACTIONS (9)
  - VISUAL IMPAIRMENT [None]
  - FATIGUE [None]
  - ABDOMINAL DISCOMFORT [None]
  - DISTURBANCE IN ATTENTION [None]
  - CONTUSION [None]
  - SKIN DISORDER [None]
  - NAUSEA [None]
  - TRANSIENT ISCHAEMIC ATTACK [None]
  - DIARRHOEA [None]
